FAERS Safety Report 6326700-4 (Version None)
Quarter: 2009Q3

REPORT INFORMATION
  Report Type: 
  Country: None (occurrence: None)
  Receive Date: 20090825
  Receipt Date: 20090812
  Transmission Date: 20100115
  Serious: Yes (Hospitalization)
  Sender: FDA-Public Use
  Company Number: PHHY2009GB24801

PATIENT
  Sex: Male

DRUGS (5)
  1. CLOZARIL [Suspect]
     Indication: SCHIZOPHRENIA
     Dosage: 225 MG
     Route: 048
     Dates: start: 20020313
  2. ALFUZOSIN HCL [Concomitant]
     Indication: HYPERTENSION
     Dosage: 10 MG
     Route: 048
  3. FUROSEMIDE [Concomitant]
     Indication: CARDIAC DISORDER
     Dosage: 40 MG
     Route: 048
  4. ENOXAPARIN SODIUM [Concomitant]
     Indication: CARDIAC DISORDER
     Dosage: 40 MG
     Route: 048
  5. SALBUTAMOL [Concomitant]
     Indication: DYSPNOEA
     Route: 048

REACTIONS (3)
  - CHEST PAIN [None]
  - COUGH [None]
  - LOWER RESPIRATORY TRACT INFECTION [None]
